FAERS Safety Report 5197701-7 (Version None)
Quarter: 2007Q1

REPORT INFORMATION
  Report Type: 
  Country: None (occurrence: None)
  Receive Date: 20070103
  Receipt Date: 20061222
  Transmission Date: 20070707
  Serious: Yes (Life-Threatening)
  Sender: FDA-Public Use
  Company Number: FR-JNJFOC-20061206107

PATIENT
  Age: 76 Year
  Sex: Female

DRUGS (6)
  1. REMINYL [Suspect]
     Indication: DRUG USE FOR UNKNOWN INDICATION
     Route: 048
  2. PYOSTACINE [Suspect]
     Indication: ERYSIPELAS
  3. MEMANTINE HCL [Concomitant]
  4. PRAVASTATIN [Concomitant]
  5. LASIX [Concomitant]
  6. ENALAPRIL MALEATE [Concomitant]

REACTIONS (9)
  - BRADYCARDIA [None]
  - CIRCULATORY COLLAPSE [None]
  - CONVULSION [None]
  - DEHYDRATION [None]
  - DIARRHOEA [None]
  - ERYSIPELAS [None]
  - HYPOTENSION [None]
  - OVERDOSE [None]
  - RENAL FAILURE [None]
